FAERS Safety Report 14494678 (Version 1)
Quarter: 2018Q1

REPORT INFORMATION
  Report Type: Spontaneous
  Country: RO (occurrence: RO)
  Receive Date: 20180206
  Receipt Date: 20180206
  Transmission Date: 20180509
  Serious: Yes (Hospitalization, Other)
  Sender: FDA-Public Use
  Company Number: PHHY2018RO015258

PATIENT
  Age: 63 Year
  Sex: Female

DRUGS (2)
  1. IMATINIB [Suspect]
     Active Substance: IMATINIB
     Indication: GASTROINTESTINAL STROMAL TUMOUR
     Route: 065
  2. SUTENT [Suspect]
     Active Substance: SUNITINIB MALATE
     Indication: GASTROINTESTINAL STROMAL TUMOUR
     Dosage: 50 MG, UNK
     Route: 065
     Dates: start: 201612, end: 201712

REACTIONS (4)
  - Haemoglobin decreased [Recovering/Resolving]
  - Malignant neoplasm progression [Unknown]
  - Gastrointestinal stromal tumour [Unknown]
  - Blood iron decreased [Recovering/Resolving]
